FAERS Safety Report 8646555 (Version 5)
Quarter: 2013Q2

REPORT INFORMATION
  Report Type: Spontaneous
  Country: US (occurrence: US)
  Receive Date: 20120702
  Receipt Date: 20130520
  Transmission Date: 20140414
  Serious: Yes (Hospitalization, Disabling, Other)
  Sender: FDA-Public Use
  Company Number: US-009507513-1207USA00063

PATIENT
  Sex: Female
  Weight: 60.32 kg

DRUGS (2)
  1. FOSAMAX [Suspect]
     Indication: OSTEOPENIA
     Dosage: 70 MG, UNK
     Route: 048
     Dates: end: 20090111
  2. FOSAMAX [Suspect]
     Indication: OSTEOPOROSIS
     Dosage: UNK, QD
     Route: 048
     Dates: start: 1996

REACTIONS (25)
  - Femur fracture [Unknown]
  - Osteoporosis [Unknown]
  - Stress fracture [Unknown]
  - Femur fracture [Unknown]
  - Bone density decreased [Unknown]
  - Open reduction of fracture [Unknown]
  - Vertebroplasty [Unknown]
  - Cardiac operation [Unknown]
  - Coronary artery bypass [Unknown]
  - Femur fracture [Unknown]
  - Fracture delayed union [Unknown]
  - Limb asymmetry [Unknown]
  - Compression fracture [Unknown]
  - Compression fracture [Unknown]
  - Chronic obstructive pulmonary disease [Not Recovered/Not Resolved]
  - Cardiomegaly [Unknown]
  - Granuloma [Unknown]
  - Parkinson^s disease [Unknown]
  - Hypertension [Unknown]
  - Cardiovascular insufficiency [Unknown]
  - Pollakiuria [Unknown]
  - Spondylolisthesis [Unknown]
  - Spinal column stenosis [Unknown]
  - Fall [Unknown]
  - Calcium deficiency [Unknown]
